FAERS Safety Report 5143526-8 (Version None)
Quarter: 2006Q4

REPORT INFORMATION
  Report Type: 
  Country: None (occurrence: None)
  Receive Date: 20061103
  Receipt Date: 20061025
  Transmission Date: 20070319
  Serious: Yes (Other)
  Sender: FDA-Public Use
  Company Number: JP-BRISTOL-MYERS SQUIBB COMPANY-13557624

PATIENT
  Age: 63 Year
  Sex: Male

DRUGS (1)
  1. KENACORT [Suspect]
     Indication: ENDOCRINE OPHTHALMOPATHY
     Route: 031

REACTIONS (2)
  - EYE INFECTION FUNGAL [None]
  - RETINAL DETACHMENT [None]
